FAERS Safety Report 6031623-4 (Version None)
Quarter: 2009Q1

REPORT INFORMATION
  Report Type: 
  Country: None (occurrence: None)
  Receive Date: 20090108
  Receipt Date: 20081230
  Transmission Date: 20090719
  Serious: Yes (Hospitalization)
  Sender: FDA-Public Use
  Company Number: US-ELI_LILLY_AND_COMPANY-US200812006128

PATIENT
  Sex: Female

DRUGS (6)
  1. FORTEO [Suspect]
     Indication: HYPOCALCAEMIA
     Dosage: 20 UG, 2/D
     Dates: start: 20060206
  2. LUPRON [Concomitant]
     Indication: PELVIC PAIN
     Dosage: EVERY THREE MONTHS
  3. CALCIUM [Concomitant]
     Indication: BLOOD CALCIUM DECREASED
     Dosage: UNK, UNK
  4. CALCIUM [Concomitant]
     Route: 048
     Dates: start: 20081201
  5. CALCIUM [Concomitant]
     Route: 042
     Dates: start: 20081201, end: 20081201
  6. VITAMIN D [Concomitant]
     Indication: BLOOD CALCIUM DECREASED
     Dates: start: 20081201

REACTIONS (10)
  - BLOOD CALCIUM DECREASED [None]
  - CHEST PAIN [None]
  - DEPRESSED MOOD [None]
  - HYPOAESTHESIA [None]
  - MEDICATION ERROR [None]
  - MUSCULOSKELETAL STIFFNESS [None]
  - OVERDOSE [None]
  - PARAESTHESIA [None]
  - PELVIC PAIN [None]
  - PNEUMONIA [None]
